FAERS Safety Report 6601798-4 (Version None)
Quarter: 2010Q1

REPORT INFORMATION
  Report Type: 
  Country: None (occurrence: None)
  Receive Date: 20100218
  Receipt Date: 20100127
  Transmission Date: 20100710
  Serious: Yes (Death, Hospitalization)
  Sender: FDA-Public Use
  Company Number: 2009AC000495

PATIENT
  Age: 56 Year
  Sex: Male
  Weight: 85.7298 kg

DRUGS (31)
  1. DIGOXIN [Suspect]
     Dosage: .125 MG; QOD; PO
     Route: 048
     Dates: start: 20080915
  2. DIGOXIN [Suspect]
     Dosage: 0.25 PO; QD; PO
     Route: 048
     Dates: start: 20060406
  3. AMIODARONE HCL [Concomitant]
  4. COREG [Concomitant]
  5. LIPITOR [Concomitant]
  6. ASPIRIN [Concomitant]
  7. KLOR-CON [Concomitant]
  8. TORSEMIDE [Concomitant]
  9. METOLAZONE [Concomitant]
  10. NIASPAN [Concomitant]
  11. CARAFATE [Concomitant]
  12. PACERONE [Concomitant]
  13. NEXIUM [Concomitant]
  14. LASIX [Concomitant]
  15. LIPITOR [Concomitant]
  16. ASPIRIN [Concomitant]
  17. TORSEMIDE [Concomitant]
  18. NIASPAN [Concomitant]
  19. PACERONE [Concomitant]
  20. CARAFATE [Concomitant]
  21. NEXIUM [Concomitant]
  22. SPIRONOLACTONE [Concomitant]
  23. FUROSEMIDE [Concomitant]
  24. DULCOLAX [Concomitant]
  25. *DOXYCYCLINE [Concomitant]
  26. METOPROLOL SUCCINATE [Concomitant]
  27. ZANTAC [Concomitant]
  28. LOTREL [Concomitant]
  29. DYAZIDE [Concomitant]
  30. IBUPROFEN [Concomitant]
  31. SILVADENE [Concomitant]

REACTIONS (17)
  - ACUTE RESPIRATORY FAILURE [None]
  - ANXIETY [None]
  - APNOEA [None]
  - CARDIAC FAILURE CONGESTIVE [None]
  - CONDITION AGGRAVATED [None]
  - DYSPNOEA [None]
  - ECONOMIC PROBLEM [None]
  - HYPOCALCAEMIA [None]
  - HYPONATRAEMIA [None]
  - MULTIPLE INJURIES [None]
  - PAIN [None]
  - RENAL FAILURE ACUTE [None]
  - SEPSIS [None]
  - SNORING [None]
  - THROMBOCYTOPENIA [None]
  - VENTRICULAR FIBRILLATION [None]
  - VENTRICULAR TACHYCARDIA [None]
